FAERS Safety Report 5069833-5 (Version None)
Quarter: 2006Q3

REPORT INFORMATION
  Report Type: 
  Country: None (occurrence: None)
  Receive Date: 20060803
  Receipt Date: 20060628
  Transmission Date: 20061208
  Serious: Yes (Life-Threatening, Other)
  Sender: FDA-Public Use
  Company Number: PHBS2006JP09849

PATIENT
  Age: 83 Year
  Sex: Female
  Weight: 47 kg

DRUGS (4)
  1. VOLTAREN [Suspect]
     Indication: BACK PAIN
     Dosage: 50 MG/DAY
     Route: 054
     Dates: end: 20060627
  2. THYRADIN [Concomitant]
     Dosage: 1.5 DF/DAY
     Route: 048
  3. ROCALTROL [Concomitant]
     Dosage: 1 DF/DAY
     Route: 048
  4. NITOROL [Concomitant]
     Dosage: 2 DF/DAY
     Route: 048

REACTIONS (8)
  - ANAPHYLACTIC SHOCK [None]
  - BLOOD PRESSURE DECREASED [None]
  - CARDIAC ARREST [None]
  - DEPRESSED LEVEL OF CONSCIOUSNESS [None]
  - ERYTHEMA [None]
  - EYELID OEDEMA [None]
  - RESPIRATORY ARREST [None]
  - RESPIRATORY FAILURE [None]
